FAERS Safety Report 9456559 (Version 1)
Quarter: 2013Q3

REPORT INFORMATION
  Report Type: Spontaneous
  Country: FR (occurrence: None)
  Receive Date: 20130809
  Receipt Date: 20130809
  Transmission Date: 20140515
  Serious: Yes (Life-Threatening, Hospitalization)
  Sender: FDA-Public Use
  Company Number: DSM-2013-00722

PATIENT
  Age: 42 Year
  Sex: Female

DRUGS (2)
  1. AXELER [Suspect]
     Indication: HYPERTENSION
     Route: 048
  2. NEBIVOLOL [Suspect]
     Indication: HYPERTENSION
     Dosage: 90 DOSAGE FORMS, ORAL
     Route: 048
     Dates: start: 20130624, end: 20130624

REACTIONS (5)
  - Vasoplegia syndrome [None]
  - Metabolic acidosis [None]
  - Hypotension [None]
  - Lactic acidosis [None]
  - Incorrect dose administered [None]
